FAERS Safety Report 7640935-X (Version None)
Quarter: 2011Q3

REPORT INFORMATION
  Report Type: 
  Country: None (occurrence: None)
  Receive Date: 20110728
  Receipt Date: 20110718
  Transmission Date: 20111222
  Serious: Yes (Hospitalization)
  Sender: FDA-Public Use
  Company Number: US-JNJFOC-20110707566

PATIENT
  Sex: Male
  Weight: 87.82 kg

DRUGS (6)
  1. COUMADIN [Concomitant]
     Route: 065
  2. VITAMIN D [Concomitant]
     Route: 048
  3. ZYTIGA [Suspect]
     Indication: PROSTATE CANCER METASTATIC
     Route: 048
     Dates: start: 20110620
  4. KRILL OIL [Concomitant]
     Route: 048
  5. TAMSULOSIN HCL [Concomitant]
     Route: 048
  6. ACETAMINOPHEN [Concomitant]
     Route: 065

REACTIONS (1)
  - PULMONARY EMBOLISM [None]
